FAERS Safety Report 7752334-0 (Version None)
Quarter: 2011Q3

REPORT INFORMATION
  Report Type: 
  Country: None (occurrence: None)
  Receive Date: 20110915
  Receipt Date: 20110901
  Transmission Date: 20111222
  Serious: Yes (Other)
  Sender: FDA-Public Use
  Company Number: CA-ELI_LILLY_AND_COMPANY-CA201109000166

PATIENT
  Sex: Male

DRUGS (9)
  1. FLUPENTHIXOL [Concomitant]
  2. ASPIRIN [Concomitant]
  3. ZYPREXA [Suspect]
     Dosage: 12.5 MG, EACH EVENING
  4. SERTRALINE HYDROCHLORIDE [Concomitant]
  5. ZOPICLONE [Concomitant]
  6. BUPROPION HCL [Concomitant]
  7. PROCYCLIDINE HYDROCHLORIDE 2MG TAB [Concomitant]
  8. ZYPREXA [Suspect]
     Dosage: 10 MG, EACH MORNING
  9. ZYPREXA [Suspect]
     Indication: SCHIZOPHRENIA, PARANOID TYPE
     Dosage: 15 MG, EACH EVENING
     Dates: start: 20021025, end: 20100801

REACTIONS (9)
  - HYPERCHOLESTEROLAEMIA [None]
  - RADIAL NERVE PALSY [None]
  - CHEST PAIN [None]
  - HYPERLIPIDAEMIA [None]
  - ERECTILE DYSFUNCTION [None]
  - DIABETES MELLITUS [None]
  - NEPHROPATHY [None]
  - IRON DEFICIENCY ANAEMIA [None]
  - DIABETIC NEUROPATHY [None]
